FAERS Safety Report 6450137-0 (Version None)
Quarter: 2009Q4

REPORT INFORMATION
  Report Type: 
  Country: None (occurrence: None)
  Receive Date: 20091120
  Receipt Date: 20091120
  Transmission Date: 20100525
  Serious: Yes (Hospitalization)
  Sender: FDA-Public Use
  Company Number: None

PATIENT
  Age: 75 Year
  Sex: Male
  Weight: 99.34 kg

DRUGS (2)
  1. INSULIN [Suspect]
     Indication: DIABETES MELLITUS
     Dosage: 130/65 UNITS UD SQ
     Route: 058
     Dates: start: 20080829, end: 20090110
  2. CLARITHROMYCIN [Suspect]
     Dosage: 500 MG BID PO
     Route: 048
     Dates: start: 20081230, end: 20090107

REACTIONS (2)
  - FALL [None]
  - HYPOGLYCAEMIA [None]
